FAERS Safety Report 5878540-8 (Version None)
Quarter: 2008Q3

REPORT INFORMATION
  Report Type: 
  Country: None (occurrence: None)
  Receive Date: 20080909
  Receipt Date: 20080826
  Transmission Date: 20090109
  Serious: Yes (Other)
  Sender: FDA-Public Use
  Company Number: 8033967

PATIENT
  Age: 4 Year
  Sex: Male

DRUGS (1)
  1. KEPPRA [Suspect]
     Indication: PARTIAL SEIZURES
     Dosage: 300 MG 2/D PO
     Route: 048
     Dates: start: 20080118

REACTIONS (1)
  - HYPOTHERMIA [None]
